FAERS Safety Report 6468395-5 (Version None)
Quarter: 2009Q4

REPORT INFORMATION
  Report Type: 
  Country: None (occurrence: None)
  Receive Date: 20091130
  Receipt Date: 20091113
  Transmission Date: 20100525
  Serious: Yes (Hospitalization)
  Sender: FDA-Public Use
  Company Number: 002154

PATIENT
  Sex: Male
  Weight: 83.9154 kg

DRUGS (13)
  1. ROTIGOTINE [Suspect]
     Indication: RESTLESS LEGS SYNDROME
     Dosage: (4 MG QD TOPICAL) ; (4 MG QD TOPICAL)
     Route: 061
     Dates: start: 20090723, end: 20090725
  2. ROTIGOTINE [Suspect]
     Indication: RESTLESS LEGS SYNDROME
     Dosage: (4 MG QD TOPICAL) ; (4 MG QD TOPICAL)
     Route: 061
     Dates: start: 20090725
  3. CELEXA [Concomitant]
  4. KLONOPIN [Concomitant]
  5. MULTI-VITAMIN [Concomitant]
  6. TESTOSTERONE [Concomitant]
  7. PRILOSEC [Concomitant]
  8. METOPROLOL [Concomitant]
  9. VIOKASE /00150201/ [Concomitant]
  10. FERROUS SULFATE TAB [Concomitant]
  11. PROMETHAZINE [Concomitant]
  12. EPOGEN [Concomitant]
  13. VANCOMYCIN [Concomitant]

REACTIONS (17)
  - ACUTE HEPATIC FAILURE [None]
  - ANAEMIA [None]
  - ATELECTASIS [None]
  - CHOLELITHIASIS [None]
  - DIALYSIS [None]
  - HEPATIC FAILURE [None]
  - HEPATITIS [None]
  - HYPERTENSION [None]
  - HYPOGLYCAEMIA [None]
  - ILEUS PARALYTIC [None]
  - NEPHROPATHY TOXIC [None]
  - PANCREATITIS ACUTE [None]
  - PLEURAL EFFUSION [None]
  - RENAL FAILURE ACUTE [None]
  - RENAL TUBULAR NECROSIS [None]
  - STAPHYLOCOCCAL INFECTION [None]
  - TACHYPNOEA [None]
